FAERS Safety Report 9678246 (Version 1)
Quarter: 2013Q4

REPORT INFORMATION
  Report Type: Spontaneous
  Country: FR (occurrence: FR)
  Receive Date: 20131108
  Receipt Date: 20131108
  Transmission Date: 20140711
  Serious: Yes (Hospitalization)
  Sender: FDA-Public Use
  Company Number: FR-WATSON-2013-20147

PATIENT
  Age: 49 Year
  Sex: Female

DRUGS (3)
  1. CARBOPLATINE ACTAVIS [Suspect]
     Indication: METASTASES TO PERITONEUM
     Dosage: 535 MG, SINGLE
     Route: 042
     Dates: start: 20130429, end: 20130429
  2. DEPAKINE CHRONO [Concomitant]
     Indication: PRODUCT USED FOR UNKNOWN INDICATION
     Dosage: 1 G, DAILY
     Route: 065
  3. TRILEPTAL [Concomitant]
     Indication: PRODUCT USED FOR UNKNOWN INDICATION
     Dosage: 600 MG, DAILY
     Route: 065

REACTIONS (2)
  - Hypotension [Recovered/Resolved]
  - Epilepsy [Recovered/Resolved]
